FAERS Safety Report 17682774 (Version 3)
Quarter: 2020Q2

REPORT INFORMATION
  Report Type: Spontaneous
  Country: PT (occurrence: PT)
  Receive Date: 20200419
  Receipt Date: 20200610
  Transmission Date: 20200714
  Serious: Yes (Other)
  Sender: FDA-Public Use
  Company Number: PT-AUROBINDO-AUR-APL-2020-018876

PATIENT
  Age: 74 Year
  Sex: Female

DRUGS (12)
  1. FUROSEMIDE. [Suspect]
     Active Substance: FUROSEMIDE
     Indication: PRODUCT USED FOR UNKNOWN INDICATION
     Dosage: 40 MILLIGRAM, ONCE A DAY
     Route: 065
  2. HYDROXYCHLOROQUINE [Concomitant]
     Active Substance: HYDROXYCHLOROQUINE
     Indication: DISEASE RECURRENCE
     Dosage: 200 MILLIGRAM, 3 TIMES A DAY
     Route: 065
  3. DOXYCYCLINE. [Concomitant]
     Active Substance: DOXYCYCLINE
     Indication: DISEASE RECURRENCE
     Dosage: 100 MILLIGRAM, TWO TIMES A DAY
     Route: 065
  4. SULFAMETHOXAZOLE [Concomitant]
     Active Substance: SULFAMETHOXAZOLE
     Dosage: 800 MILLIGRAM, TWO TIMES A DAY
     Route: 065
  5. CEFTRIAXONE. [Suspect]
     Active Substance: CEFTRIAXONE
     Indication: WHIPPLE^S DISEASE
     Dosage: 2 GRAM, DAILY FOR 2 WEEKS
     Route: 042
  6. LORAZEPAM. [Concomitant]
     Active Substance: LORAZEPAM
     Indication: PRODUCT USED FOR UNKNOWN INDICATION
     Dosage: 1 MILLIGRAM, ONCE A DAY
     Route: 065
  7. OMEPRAZOLE. [Suspect]
     Active Substance: OMEPRAZOLE
     Indication: PRODUCT USED FOR UNKNOWN INDICATION
     Dosage: 20 MILLIGRAM, ONCE A DAY
     Route: 065
  8. HYDROXYCHLOROQUINE [Concomitant]
     Active Substance: HYDROXYCHLOROQUINE
     Indication: WHIPPLE^S DISEASE
  9. DOXYCYCLINE. [Concomitant]
     Active Substance: DOXYCYCLINE
     Indication: WHIPPLE^S DISEASE
  10. SULFAMETHOXAZOLE AND TRIMETHOPRIM [Concomitant]
     Active Substance: SULFAMETHOXAZOLE\TRIMETHOPRIM
     Indication: WHIPPLE^S DISEASE
     Dosage: 800MG / 160MG BID
     Route: 065
  11. SULFAMETHOXAZOLE [Concomitant]
     Active Substance: SULFAMETHOXAZOLE
     Indication: WHIPPLE^S DISEASE
     Dosage: 160 MILLIGRAM, TWO TIMES A DAY
     Route: 065
  12. CEFTRIAXONE. [Suspect]
     Active Substance: CEFTRIAXONE
     Indication: DISEASE RECURRENCE
     Dosage: 2 GRAM, TWO TIMES A DAY
     Route: 065

REACTIONS (16)
  - Off label use [Unknown]
  - Arthralgia [Unknown]
  - Leukocytosis [Recovered/Resolved]
  - Asthenia [Unknown]
  - Abdominal pain [Unknown]
  - Diarrhoea [Recovered/Resolved]
  - Retroperitoneal lymphadenopathy [Unknown]
  - Oedema [Unknown]
  - Pallor [Unknown]
  - Whipple^s disease [Unknown]
  - Vomiting [Unknown]
  - Weight decreased [Recovering/Resolving]
  - Hypochromic anaemia [Recovered/Resolved]
  - Protein total decreased [Recovered/Resolved]
  - Dyspnoea [Unknown]
  - Anaemia [Recovered/Resolved]
